FAERS Safety Report 23396129 (Version 1)
Quarter: 2024Q1

REPORT INFORMATION
  Report Type: Spontaneous
  Country: US (occurrence: US)
  Receive Date: 20240112
  Receipt Date: 20240112
  Transmission Date: 20240410
  Serious: Yes (Other)
  Sender: FDA-Public Use
  Company Number: US-002147023-NVSC2024US006649

PATIENT

DRUGS (2)
  1. ENTRESTO [Suspect]
     Active Substance: SACUBITRIL\VALSARTAN
     Indication: Product used for unknown indication
     Dosage: 24 MG, BID
     Route: 065
  2. ENTRESTO [Suspect]
     Active Substance: SACUBITRIL\VALSARTAN
     Dosage: 49 MG, BID
     Route: 065

REACTIONS (6)
  - Cardiac failure congestive [Unknown]
  - Emotional distress [Unknown]
  - Hypoaesthesia [Unknown]
  - Chest discomfort [Unknown]
  - Product dose omission issue [Unknown]
  - Dyspnoea [Unknown]
